FAERS Safety Report 12244985 (Version 6)
Quarter: 2016Q4

REPORT INFORMATION
  Report Type: Report from Study
  Country: AR (occurrence: AR)
  Receive Date: 20160407
  Receipt Date: 20161028
  Transmission Date: 20170207
  Serious: Yes (Life-Threatening, Hospitalization, Other)
  Sender: FDA-Public Use
  Company Number: PHHY2016AR044719

PATIENT
  Age: 87 Year
  Sex: Female
  Weight: 39 kg

DRUGS (1)
  1. SANDOSTATIN LAR DEPOT [Suspect]
     Active Substance: OCTREOTIDE ACETATE
     Indication: PANCREATIC NEOPLASM
     Dosage: 30 MG, QMO
     Route: 065
     Dates: start: 200501

REACTIONS (16)
  - Muscle atrophy [Not Recovered/Not Resolved]
  - Skin discolouration [Recovering/Resolving]
  - Head injury [Recovering/Resolving]
  - Tachycardia [Recovered/Resolved]
  - Hyponatraemia [Not Recovered/Not Resolved]
  - Faeces soft [Recovering/Resolving]
  - Dehydration [Recovering/Resolving]
  - Osteoporosis [Recovered/Resolved]
  - Asthenia [Unknown]
  - Diarrhoea [Not Recovered/Not Resolved]
  - Organ failure [Recovering/Resolving]
  - Fall [Recovering/Resolving]
  - Blood sodium increased [Recovering/Resolving]
  - Gait disturbance [Not Recovered/Not Resolved]
  - Wrist fracture [Not Recovered/Not Resolved]
  - Vascular compression [Unknown]

NARRATIVE: CASE EVENT DATE: 20160828
